FAERS Safety Report 19714193 (Version 1)
Quarter: 2021Q3

REPORT INFORMATION
  Report Type: Spontaneous
  Country: US (occurrence: US)
  Receive Date: 20210817
  Receipt Date: 20210817
  Transmission Date: 20211014
  Serious: Yes (Hospitalization)
  Sender: FDA-Public Use
  Company Number: None

PATIENT
  Sex: Male

DRUGS (1)
  1. TOBRAMYCIN 300MG/4ML BETHK GEQ [Suspect]
     Active Substance: TOBRAMYCIN
     Indication: OESOPHAGEAL ATRESIA
     Dosage: OTHER DOSE:300MG/4ML;?INHALE 2ML (ONE ?HALF VIAL) VIA NEBULIZER TWICE DAILY FOR 28 DAYS ON, 28 DAYS OFF, REPEAT CYCLE (DISCARD REMAINDER IN VIAL AFTER EACH DOSE)
     Route: 055

REACTIONS (1)
  - Hospitalisation [None]
